FAERS Safety Report 6152034-7 (Version None)
Quarter: 2009Q2

REPORT INFORMATION
  Report Type: 
  Country: None (occurrence: None)
  Receive Date: 20090410
  Receipt Date: 20090409
  Transmission Date: 20091009
  Serious: Yes (Other)
  Sender: FDA-Public Use
  Company Number: US-BRISTOL-MYERS SQUIBB COMPANY-14569438

PATIENT
  Age: 81 Year
  Sex: Male

DRUGS (3)
  1. COUMADIN [Suspect]
     Indication: ATRIAL FIBRILLATION
     Dosage: ALTERNATING 7.5 MG WITH 5 MG
     Route: 048
     Dates: start: 20061223
  2. WARFARIN SODIUM [Suspect]
     Indication: ATRIAL FIBRILLATION
  3. RADIATION THERAPY [Suspect]

REACTIONS (3)
  - GASTROINTESTINAL DISORDER [None]
  - PROSTATE CANCER [None]
  - URINARY TRACT DISORDER [None]
